FAERS Safety Report 24531146 (Version 2)
Quarter: 2024Q4

REPORT INFORMATION
  Report Type: Report from Study
  Country: US (occurrence: US)
  Receive Date: 20241022
  Receipt Date: 20241025
  Transmission Date: 20250115
  Serious: Yes (Other)
  Sender: ABBVIE
  Company Number: US-ABBVIE-5968448

PATIENT
  Sex: Female
  Weight: 86.182 kg

DRUGS (15)
  1. RINVOQ [Suspect]
     Active Substance: UPADACITINIB
     Indication: Rheumatoid arthritis
     Dosage: FORM STRENGTH: 15MG
     Route: 048
     Dates: start: 20230615, end: 202409
  2. RINVOQ [Suspect]
     Active Substance: UPADACITINIB
     Indication: Rheumatoid arthritis
     Dosage: FORM STRENGTH: 15MG
     Route: 048
     Dates: start: 202410
  3. FORTEO [Concomitant]
     Active Substance: TERIPARATIDE
     Indication: Product used for unknown indication
  4. HYDROCHLOROTHIAZIDE [Concomitant]
     Active Substance: HYDROCHLOROTHIAZIDE
     Indication: Hypertension
  5. BUPRENORPHINE [Concomitant]
     Active Substance: BUPRENORPHINE
     Indication: Pain
  6. FOLIC ACID [Concomitant]
     Active Substance: FOLIC ACID
     Indication: Vitamin supplementation
  7. GABAPENTIN [Concomitant]
     Active Substance: GABAPENTIN
     Indication: Neuropathy peripheral
  8. SYNTHROID [Concomitant]
     Active Substance: LEVOTHYROXINE SODIUM
     Indication: Product used for unknown indication
  9. VOLTAREN [Concomitant]
     Active Substance: DICLOFENAC SODIUM
     Indication: Pain
  10. DULOXETINE [Concomitant]
     Active Substance: DULOXETINE
     Indication: Sleep disorder
  11. ALENDRONATE [Concomitant]
     Active Substance: ALENDRONATE SODIUM
     Indication: Osteoporosis
  12. RELISTOR [Concomitant]
     Active Substance: METHYLNALTREXONE BROMIDE
     Indication: Constipation
  13. METHOCARBAMOL [Concomitant]
     Active Substance: METHOCARBAMOL
     Indication: Product used for unknown indication
  14. NORTRIPTYLINE [Concomitant]
     Active Substance: NORTRIPTYLINE
     Indication: Sleep disorder
  15. COREG [Concomitant]
     Active Substance: CARVEDILOL
     Indication: Hypertension

REACTIONS (8)
  - Scapholunate dissociation [Recovering/Resolving]
  - Discomfort [Recovering/Resolving]
  - Scapholunate dissociation [Recovering/Resolving]
  - Arthritis [Recovering/Resolving]
  - Surgical failure [Recovering/Resolving]
  - Pain [Recovering/Resolving]
  - Motor dysfunction [Not Recovered/Not Resolved]
  - Disability [Not Recovered/Not Resolved]

NARRATIVE: CASE EVENT DATE: 20240101
